FAERS Safety Report 8619034-6 (Version None)
Quarter: 2012Q3

REPORT INFORMATION
  Report Type: 
  Country: None (occurrence: None)
  Receive Date: 20120824
  Receipt Date: 20120821
  Transmission Date: 20120928
  Serious: Yes (Death, Other)
  Sender: FDA-Public Use
  Company Number: US-BAYER-200939788NA

PATIENT
  Age: 54 Year
  Sex: Male
  Weight: 77 kg

DRUGS (27)
  1. HEPARIN [Concomitant]
     Dosage: 320 MG PUMP
     Route: 042
     Dates: start: 20050823, end: 20050823
  2. HEPARIN [Concomitant]
     Dosage: 50 MG PUMP PRIME
     Dates: start: 20050823, end: 20050823
  3. MANNITOL [Concomitant]
     Dosage: 12.5 GM PUMP PRIME
     Dates: start: 20050823, end: 20050823
  4. PROTAMINE SULFATE [Concomitant]
     Dosage: UNK
     Dates: start: 20050823, end: 20050823
  5. PHENYLEPHRINE HCL [Concomitant]
     Dosage: UNK
     Dates: start: 20050823, end: 20050823
  6. ATACAND [Concomitant]
  7. PLAVIX [Concomitant]
     Dosage: 300 MG, UNK
     Dates: start: 20050823
  8. ANECTINE [Concomitant]
     Dosage: UNK
     Dates: start: 20050823, end: 20050823
  9. ROCEPHIN [Concomitant]
     Dosage: 1 G, UNK
     Route: 042
     Dates: start: 20050823, end: 20050823
  10. TRASYLOL [Suspect]
     Indication: CORONARY ARTERY BYPASS
     Dosage: INFUSION 50 ML/HOUR
     Route: 042
     Dates: start: 20050823, end: 20050823
  11. CELEBREX [Concomitant]
  12. DOPAMINE HCL [Concomitant]
     Dosage: TITRATED, DRIP
     Route: 042
     Dates: start: 20050823
  13. HEPARIN [Concomitant]
     Dosage: 25,000 UNITS
     Route: 042
     Dates: start: 20050823, end: 20050823
  14. LASIX [Concomitant]
     Dosage: 40 MG PUMP
     Dates: start: 20050823, end: 20050823
  15. THIOPENTAL SODIUM [Concomitant]
     Dosage: UNK
     Dates: start: 20050823, end: 20050823
  16. PANCURONIUM BROMIDE [Concomitant]
     Dosage: UNK
     Dates: start: 20050823, end: 20050823
  17. LOVENOX [Concomitant]
     Dosage: 30 MG, UNK
     Route: 042
     Dates: start: 20050823
  18. LEVOPHED [Concomitant]
     Dosage: TITRATED DRIP
     Route: 042
  19. HEPARIN [Concomitant]
     Dosage: 3,000 UNITS
     Route: 042
     Dates: start: 20050823, end: 20050823
  20. KEFZOL [Concomitant]
     Dosage: 1 GM PUMP PRIME
     Dates: start: 20050823, end: 20050823
  21. ISOFLURANE [Concomitant]
     Dosage: UNK
     Dates: start: 20050823, end: 20050823
  22. VERSED [Concomitant]
     Dosage: 2 MG, UNK
     Route: 042
     Dates: start: 20050823
  23. AMIODARONE HCL [Concomitant]
     Dosage: BOLUS DRIP [DOSE ILLEGIBLE]
     Route: 042
     Dates: start: 20050823
  24. SCOPOLAMINE [Concomitant]
     Dosage: 0.4 MG, UNK
     Route: 042
     Dates: start: 20050823
  25. FENTANYL [Concomitant]
     Dosage: UNK
     Dates: start: 20050823, end: 20050823
  26. TRASYLOL [Suspect]
     Dosage: 1 MILLION, QUANTITY 12
     Route: 042
     Dates: start: 20050823, end: 20050830
  27. LABETALOL HCL [Concomitant]
     Dosage: 40 MG, UNK
     Route: 042
     Dates: start: 20050823

REACTIONS (15)
  - UNEVALUABLE EVENT [None]
  - FEAR [None]
  - MULTI-ORGAN FAILURE [None]
  - RENAL FAILURE [None]
  - INJURY [None]
  - EMOTIONAL DISTRESS [None]
  - ANHEDONIA [None]
  - CARDIOGENIC SHOCK [None]
  - RENAL INJURY [None]
  - STRESS [None]
  - RENAL IMPAIRMENT [None]
  - ANXIETY [None]
  - DEATH [None]
  - PAIN [None]
  - RENAL DISORDER [None]
